FAERS Safety Report 25140941 (Version 2)
Quarter: 2025Q3

REPORT INFORMATION
  Report Type: Spontaneous
  Country: EU (occurrence: EU)
  Receive Date: 20250331
  Receipt Date: 20250805
  Transmission Date: 20251021
  Serious: Yes (Other)
  Sender: ELI LILLY AND COMPANY
  Company Number: EU-ELI_LILLY_AND_COMPANY-IT202503014933

PATIENT
  Age: 31 Year
  Sex: Male

DRUGS (5)
  1. SOMATROPIN [Suspect]
     Active Substance: SOMATROPIN
     Indication: Muscle mass
     Route: 065
  2. TESTOSTERONE [Suspect]
     Active Substance: TESTOSTERONE
     Indication: Muscle mass
     Route: 065
  3. TESTOSTERONE PROPIONATE [Suspect]
     Active Substance: TESTOSTERONE PROPIONATE
     Indication: Muscle mass
     Route: 065
  4. STANOZOLOL [Suspect]
     Active Substance: STANOZOLOL
     Indication: Muscle mass
     Route: 065
  5. TRENBOLONE [Suspect]
     Active Substance: TRENBOLONE
     Indication: Muscle mass
     Route: 065

REACTIONS (10)
  - Dilated cardiomyopathy [Unknown]
  - Cardiac failure acute [Unknown]
  - Left ventricular dysfunction [Unknown]
  - Drug abuse [Unknown]
  - Pulmonary oedema [Unknown]
  - Pneumonia [Unknown]
  - Hepatic steatosis [Unknown]
  - Hepatomegaly [Unknown]
  - Renal failure [Unknown]
  - Off label use [Unknown]
